FAERS Safety Report 11184509 (Version 1)
Quarter: 2015Q2

REPORT INFORMATION
  Report Type: Spontaneous
  Country: NL (occurrence: None)
  Receive Date: 20150610
  Receipt Date: 20150610
  Transmission Date: 20150821
  Serious: Yes (Other)
  Sender: FDA-Public Use
  Company Number: NL-DEXPHARM-20150515

PATIENT
  Age: 83 Year
  Sex: Male

DRUGS (2)
  1. DICLOFENAC ACTIVE SUBSTANCES: DICLOFENAC [Suspect]
     Active Substance: DICLOFENAC
     Dosage: DOSAGE TEXT: 3 X 50 MG?DOSE: 50 MG MILLIGRAM (S) ?SEPARATE DOSAGES: 3
  2. ENOXAPARIN [Suspect]
     Active Substance: ENOXAPARIN
     Indication: EMBOLISM
     Dosage: 80 MG MILLGRAM(S) ?SEP. DOSAGES/INTERVAL: ?2 IN 1 DAYS

REACTIONS (2)
  - Haemoglobin decreased [None]
  - Post procedural haemorrhage [None]
